FAERS Safety Report 8569572 (Version 5)
Quarter: 2012Q4

REPORT INFORMATION
  Report Type: 
  Country: CA (occurrence: CA)
  Receive Date: 20120518
  Receipt Date: 20121009
  Transmission Date: 20130627
  Serious: Yes (Hospitalization, Disabling, Other)
  Sender: FDA-Public Use
  Company Number: PHHY2012CA041473

PATIENT
  Age: 73 Year
  Sex: Female
  Weight: 50 kg

DRUGS (4)
  1. AMIODARONE [Suspect]
     Indication: ATRIAL FIBRILLATION
     Dosage: 150 mg, ONCE/SINGLE overe 20 minutes
     Route: 040
     Dates: start: 20120510, end: 20120510
  2. AMIODARONE [Suspect]
     Dosage: 60 mg/h, during 8 hours
     Dates: start: 20120510, end: 20120510
  3. AMIODARONE [Suspect]
     Dosage: 60 mg/h, during next 16 hours
     Dates: start: 20120510, end: 20120511
  4. AMIODARONE [Suspect]
     Route: 048

REACTIONS (13)
  - Infection [Recovered/Resolved with Sequelae]
  - Thrombophlebitis [Recovered/Resolved with Sequelae]
  - Thrombosis [Not Recovered/Not Resolved]
  - Phlebitis [Recovered/Resolved with Sequelae]
  - Injection site pain [Not Recovered/Not Resolved]
  - Injection site erythema [Not Recovered/Not Resolved]
  - Injection site warmth [Recovered/Resolved with Sequelae]
  - Infusion site extravasation [Recovered/Resolved with Sequelae]
  - Injection site discharge [Recovered/Resolved with Sequelae]
  - Skin oedema [Recovered/Resolved with Sequelae]
  - Condition aggravated [Recovered/Resolved with Sequelae]
  - Vein disorder [Not Recovered/Not Resolved]
  - Mobility decreased [Not Recovered/Not Resolved]
